FAERS Safety Report 4358844-0 (Version None)
Quarter: 2004Q2

REPORT INFORMATION
  Report Type: 
  Country: None (occurrence: None)
  Receive Date: 20040511
  Receipt Date: 20040429
  Transmission Date: 20050107
  Serious: Yes (Other)
  Sender: FDA-Public Use
  Company Number: US013025

PATIENT
  Age: 3 Year
  Sex: Female
  Weight: 14.5151 kg

DRUGS (1)
  1. ACTIQ [Suspect]
     Dosage: 133 UG ONCE BUCCAL
     Route: 002
     Dates: start: 20040414, end: 20040414

REACTIONS (3)
  - ACCIDENTAL EXPOSURE [None]
  - NAUSEA [None]
  - VOMITING [None]
